FAERS Safety Report 20249379 (Version 1)
Quarter: 2021Q4

REPORT INFORMATION
  Report Type: Spontaneous
  Country: US (occurrence: US)
  Receive Date: 20211229
  Receipt Date: 20211229
  Transmission Date: 20220303
  Serious: No
  Sender: FDA-Public Use
  Company Number: US-PFIZER INC-202101293784

PATIENT
  Age: 57 Year
  Sex: Female
  Weight: 70.295 kg

DRUGS (4)
  1. IBRANCE [Suspect]
     Active Substance: PALBOCICLIB
     Indication: Breast cancer metastatic
     Dosage: 100 MG, CYCLIC (DAILY X 21DAYS)
     Route: 048
     Dates: start: 20210408
  2. LETROZOLE [Suspect]
     Active Substance: LETROZOLE
     Dosage: 2.5 MG
  3. BIOTIN [Concomitant]
     Active Substance: BIOTIN
     Dosage: 10000 UG
  4. ESTROGEL [Concomitant]
     Active Substance: ESTRADIOL
     Dosage: 1.25 G(1.25 G GEL MD PMP)

REACTIONS (3)
  - Fatigue [Unknown]
  - Dry skin [Unknown]
  - Dry eye [Unknown]

NARRATIVE: CASE EVENT DATE: 20210101
